FAERS Safety Report 5680662-1 (Version None)
Quarter: 2008Q1

REPORT INFORMATION
  Report Type: 
  Country: None (occurrence: None)
  Receive Date: 20080326
  Receipt Date: 20070329
  Transmission Date: 20080703
  Serious: No
  Sender: FDA-Public Use
  Company Number: US-BAUSCH-2007BL001049

PATIENT
  Age: 51 Year
  Sex: Female

DRUGS (3)
  1. LOTEMAX [Suspect]
     Indication: IRITIS
     Route: 047
     Dates: start: 20070327, end: 20070328
  2. XALATAN /SWE/ [Concomitant]
     Indication: GLAUCOMA
  3. VITAMINS [Concomitant]

REACTIONS (3)
  - OROPHARYNGEAL SWELLING [None]
  - PHARYNGOLARYNGEAL PAIN [None]
  - SWELLING FACE [None]
